FAERS Safety Report 9696068 (Version 1)
Quarter: 2013Q4

REPORT INFORMATION
  Report Type: Spontaneous
  Country: US (occurrence: US)
  Receive Date: 20131119
  Receipt Date: 20131119
  Transmission Date: 20140711
  Serious: No
  Sender: FDA-Public Use
  Company Number: US-009507513-1311USA007210

PATIENT
  Sex: Female
  Weight: 52.15 kg

DRUGS (1)
  1. NEXPLANON [Suspect]
     Indication: MENSTRUAL DISORDER
     Dosage: 3 YEAR IMPLANT
     Route: 059
     Dates: start: 20120515

REACTIONS (13)
  - Malaise [Unknown]
  - Influenza [Unknown]
  - Menorrhagia [Recovered/Resolved]
  - Menorrhagia [Unknown]
  - Breast pain [Unknown]
  - Back pain [Unknown]
  - Headache [Unknown]
  - Depression [Unknown]
  - Mood altered [Unknown]
  - Dysmenorrhoea [Unknown]
  - Muscle spasms [Unknown]
  - Pain in extremity [Unknown]
  - Weight decreased [Unknown]
